FAERS Safety Report 5920465-3 (Version None)
Quarter: 2008Q4

REPORT INFORMATION
  Report Type: 
  Country: None (occurrence: None)
  Receive Date: 20081016
  Receipt Date: 20081010
  Transmission Date: 20090506
  Serious: Yes (Disabling, Other)
  Sender: FDA-Public Use
  Company Number: US-PURDUE-USA_2008_0035407

PATIENT
  Age: 34 Year
  Sex: Female

DRUGS (5)
  1. OXYCONTIN [Suspect]
     Indication: BACK PAIN
     Dates: start: 20080509
  2. METHAMPHETAMINE HYDROCHLORIDE [Suspect]
     Indication: DRUG ABUSE
     Dates: start: 20080507
  3. XANAX [Suspect]
     Indication: DRUG USE FOR UNKNOWN INDICATION
     Dates: start: 20080509
  4. COCAINE [Suspect]
     Indication: DRUG ABUSE
     Dates: start: 20080508
  5. MARIJUANA [Suspect]
     Indication: DRUG ABUSE

REACTIONS (3)
  - IMPAIRED DRIVING ABILITY [None]
  - ROAD TRAFFIC ACCIDENT [None]
  - SUBSTANCE ABUSE [None]
